FAERS Safety Report 5681334-X (Version None)
Quarter: 2008Q1

REPORT INFORMATION
  Report Type: 
  Country: None (occurrence: None)
  Receive Date: 20080326
  Receipt Date: 20070123
  Transmission Date: 20080703
  Serious: No
  Sender: FDA-Public Use
  Company Number: US-BAYER-US-2007-002272

PATIENT
  Age: 40 Year
  Sex: Female
  Weight: 58 kg

DRUGS (3)
  1. MIRENA [Suspect]
     Route: 015
     Dates: start: 20060801
  2. ZOLOFT [Concomitant]
  3. DITROPAN [Concomitant]

REACTIONS (2)
  - HAIR GROWTH ABNORMAL [None]
  - VAGINAL DISCHARGE [None]
